FAERS Safety Report 19084764 (Version 3)
Quarter: 2021Q2

REPORT INFORMATION
  Report Type: Spontaneous
  Country: CH (occurrence: CH)
  Receive Date: 20210401
  Receipt Date: 20210507
  Transmission Date: 20210717
  Serious: Yes (Other)
  Sender: FDA-Public Use
  Company Number: CH-BAYER-2021-107596

PATIENT
  Age: 80 Year
  Sex: Female

DRUGS (5)
  1. VITRAKVI [Suspect]
     Active Substance: LAROTRECTINIB
     Indication: LUNG ADENOCARCINOMA STAGE IV
     Dosage: 100 MG, QD
     Dates: start: 20201230
  2. TELMISARTAN. [Concomitant]
     Active Substance: TELMISARTAN
  3. CALCIMAGON D3 [Concomitant]
     Active Substance: CALCIUM\CHOLECALCIFEROL
  4. VITRAKVI [Suspect]
     Active Substance: LAROTRECTINIB
     Indication: LUNG ADENOCARCINOMA STAGE IV
     Dosage: 100 MG, QOD
     Dates: start: 20210219
  5. INDAPAMIDE. [Concomitant]
     Active Substance: INDAPAMIDE

REACTIONS (4)
  - Aspartate aminotransferase increased [Recovering/Resolving]
  - Alanine aminotransferase increased [Recovering/Resolving]
  - Hepatic cytolysis [Recovering/Resolving]
  - Off label use [None]

NARRATIVE: CASE EVENT DATE: 20210212
